FAERS Safety Report 7991547-X (Version None)
Quarter: 2011Q4

REPORT INFORMATION
  Report Type: 
  Country: None (occurrence: None)
  Receive Date: 20111219
  Receipt Date: 20111215
  Transmission Date: 20120403
  Serious: Yes (Hospitalization, Other)
  Sender: FDA-Public Use
  Company Number: JP-PFIZER INC-2011290163

PATIENT
  Age: 78 Year
  Sex: Male

DRUGS (9)
  1. EPLERENONE [Suspect]
     Indication: HYPERTENSION
     Dosage: 50 MG, DAILY
     Route: 048
     Dates: end: 20111126
  2. MEIACT [Concomitant]
     Dosage: 300 MG, DAILY
     Route: 048
     Dates: end: 20111126
  3. NORVASC [Concomitant]
     Indication: HYPERTENSION
     Dosage: 2.5 MG, DAILY
     Route: 048
     Dates: end: 20111126
  4. LOXONIN [Concomitant]
     Dosage: 60 MG, UDAILY
     Route: 048
     Dates: end: 20111126
  5. ACETAMINOPHEN [Concomitant]
     Dosage: 1800 MG, DAILY
     Route: 048
     Dates: end: 20111126
  6. ALLOPURINOL [Suspect]
     Indication: GOUT
     Dosage: 50 MG, DAILY
     Route: 048
     Dates: end: 20111122
  7. CANDESARTAN CILEXETIL [Suspect]
     Indication: HYPERTENSION
     Dosage: 8 MG, DAILY
     Route: 048
     Dates: end: 20111126
  8. LASIX [Concomitant]
     Dosage: 10 MG, DAILY
     Route: 048
     Dates: end: 20111126
  9. RHEUMATREX [Concomitant]
     Dosage: UNK
     Dates: end: 20111126

REACTIONS (1)
  - PANCYTOPENIA [None]
